FAERS Safety Report 7765337-7 (Version None)
Quarter: 2011Q3

REPORT INFORMATION
  Report Type: 
  Country: None (occurrence: None)
  Receive Date: 20110921
  Receipt Date: 20110907
  Transmission Date: 20111222
  Serious: Yes (Hospitalization, Other)
  Sender: FDA-Public Use
  Company Number: US-BAYER-2011-010464

PATIENT
  Age: 70 Year
  Sex: Female
  Weight: 68.02 kg

DRUGS (4)
  1. VITAMIN B-12 [Concomitant]
  2. ULTRAVIST 150 [Suspect]
     Indication: COMPUTERISED TOMOGRAM ABDOMEN
     Dosage: 80 ML, ONCE
     Route: 042
     Dates: start: 20110125, end: 20110125
  3. ANTIHYPERTENSIVES [Concomitant]
  4. PRILOSEC [Concomitant]

REACTIONS (4)
  - FEELING HOT [None]
  - UNRESPONSIVE TO STIMULI [None]
  - MOANING [None]
  - PRESYNCOPE [None]
